FAERS Safety Report 12318837 (Version 1)
Quarter: 2016Q2

REPORT INFORMATION
  Report Type: Spontaneous
  Country: US (occurrence: US)
  Receive Date: 20160429
  Receipt Date: 20160429
  Transmission Date: 20160815
  Serious: No
  Sender: FDA-Public Use
  Company Number: US-BAYER-2016-081640

PATIENT
  Sex: Female

DRUGS (1)
  1. MIRENA [Suspect]
     Active Substance: LEVONORGESTREL
     Dosage: 20 MCG/24HR, CONT
     Route: 015
     Dates: start: 20160205

REACTIONS (9)
  - Adverse drug reaction [None]
  - Nausea [None]
  - Intentional device misuse [None]
  - Unevaluable event [None]
  - Mood swings [None]
  - Panic attack [None]
  - Headache [None]
  - Abnormal weight gain [None]
  - Mental disorder [None]
